FAERS Safety Report 4329229-8 (Version None)
Quarter: 2004Q1

REPORT INFORMATION
  Report Type: 
  Country: None (occurrence: None)
  Receive Date: 20040331
  Receipt Date: 20040331
  Transmission Date: 20041129
  Serious: Yes (Life-Threatening, Other)
  Sender: FDA-Public Use
  Company Number: None

PATIENT
  Age: 75 Year
  Sex: Male
  Weight: 77.1115 kg

DRUGS (10)
  1. CRESTOR [Suspect]
     Indication: IDIOPATHIC THROMBOCYTOPENIC PURPURA
     Dosage: PO QD
     Route: 048
     Dates: start: 20031024, end: 20040303
  2. CRESTOR [Suspect]
     Indication: THROMBOCYTOPENIA
     Dosage: PO QD
     Route: 048
     Dates: start: 20031024, end: 20040303
  3. SYNTHROID [Concomitant]
  4. ASPIRIN [Concomitant]
  5. FOSAMAX [Concomitant]
  6. ATENOLOL [Concomitant]
  7. TNG [Concomitant]
  8. MULTI-VITAMINS [Concomitant]
  9. FOLIC ACID [Concomitant]
  10. VITAMIN B COMPLEX CAP [Concomitant]

REACTIONS (1)
  - PLATELET COUNT DECREASED [None]
